FAERS Safety Report 6537744-1 (Version None)
Quarter: 2010Q1

REPORT INFORMATION
  Report Type: 
  Country: None (occurrence: None)
  Receive Date: 20100114
  Receipt Date: 20100107
  Transmission Date: 20100710
  Serious: Yes (Other)
  Sender: FDA-Public Use
  Company Number: US-JNJFOC-20080700400

PATIENT
  Sex: Female
  Weight: 48.99 kg

DRUGS (7)
  1. REMICADE [Suspect]
     Route: 042
  2. REMICADE [Suspect]
     Route: 042
  3. REMICADE [Suspect]
     Route: 042
  4. REMICADE [Suspect]
     Dosage: 1 INFUSION PRIOR TO BASELINE
     Route: 042
  5. REMICADE [Suspect]
     Dosage: 1 INFUSION PRIOR TO BASELINE
     Route: 042
  6. REMICADE [Suspect]
     Indication: CROHN'S DISEASE
     Dosage: 1 INFUSION PRIOR TO BASELINE
     Route: 042
  7. HUMIRA [Suspect]
     Indication: CROHN'S DISEASE
     Route: 058

REACTIONS (1)
  - B-CELL LYMPHOMA [None]
